FAERS Safety Report 7531498-8 (Version None)
Quarter: 2011Q2

REPORT INFORMATION
  Report Type: 
  Country: None (occurrence: None)
  Receive Date: 20110608
  Receipt Date: 20110601
  Transmission Date: 20111010
  Serious: Yes (Life-Threatening)
  Sender: FDA-Public Use
  Company Number: GB-AMGEN-GBRCT2011008939

PATIENT
  Age: 78 Year
  Sex: Male

DRUGS (10)
  1. CAPECITABINE [Concomitant]
     Dosage: UNK
     Dates: start: 20100920, end: 20101220
  2. ZOPLICONE [Concomitant]
     Dosage: 3.75 MG, UNK
     Dates: start: 20101001
  3. ZINERYT [Concomitant]
     Dosage: UNK UNK, BID
     Dates: start: 20100929, end: 20101101
  4. NYSTATIN [Concomitant]
     Dosage: 100000 IU, UNK
     Dates: start: 20101002
  5. LANSOPRAZOLE [Concomitant]
     Dosage: 30 MG, QD
     Dates: start: 20100928
  6. PANITUMUMAB [Suspect]
     Indication: GASTRIC CANCER
     Dosage: UNK
     Dates: start: 20100920, end: 20101222
  7. MULTI-VITAMINS [Concomitant]
     Dosage: UNK UNK, TID
     Dates: start: 20100928
  8. EPIRUBICIN [Concomitant]
     Dosage: UNK
     Dates: start: 20100920, end: 20101222
  9. RANITIDINE [Concomitant]
     Indication: DYSPEPSIA
     Dosage: 150 MG, BID
     Dates: start: 20100928
  10. OXALIPLATIN [Concomitant]
     Dosage: UNK
     Dates: start: 20100920, end: 20101222

REACTIONS (1)
  - PULMONARY EMBOLISM [None]
